FAERS Safety Report 16339687 (Version 1)
Quarter: 2019Q2

REPORT INFORMATION
  Report Type: Spontaneous
  Country: US (occurrence: US)
  Receive Date: 20190521
  Receipt Date: 20190521
  Transmission Date: 20190711
  Serious: Yes (Hospitalization)
  Sender: FDA-Public Use
  Company Number: US-ELI_LILLY_AND_COMPANY-US201905008019

PATIENT
  Sex: Female

DRUGS (2)
  1. TRULICITY [Suspect]
     Active Substance: DULAGLUTIDE
     Indication: PRODUCT USED FOR UNKNOWN INDICATION
     Dosage: 0.75 MG, UNKNOWN
     Route: 065
     Dates: start: 201802
  2. TRULICITY [Suspect]
     Active Substance: DULAGLUTIDE
     Dosage: 1.5 MG, UNKNOWN
     Route: 065

REACTIONS (15)
  - Ill-defined disorder [Recovering/Resolving]
  - Abnormal dreams [Recovering/Resolving]
  - Nasopharyngitis [Recovering/Resolving]
  - Diarrhoea [Recovering/Resolving]
  - Dysstasia [Recovering/Resolving]
  - Vomiting [Recovering/Resolving]
  - Product dose omission [Recovering/Resolving]
  - Asthenia [Recovering/Resolving]
  - Abdominal discomfort [Recovering/Resolving]
  - Blood glucose decreased [Recovering/Resolving]
  - Hyperhidrosis [Recovering/Resolving]
  - Eructation [Recovering/Resolving]
  - Glycosylated haemoglobin increased [Recovering/Resolving]
  - Hunger [Recovering/Resolving]
  - Sleep disorder [Recovering/Resolving]
